FAERS Safety Report 17636234 (Version 1)
Quarter: 2020Q2

REPORT INFORMATION
  Report Type: Spontaneous
  Country: CH (occurrence: CH)
  Receive Date: 20200407
  Receipt Date: 20200407
  Transmission Date: 20200713
  Serious: Yes (Congenital Anomaly)
  Sender: FDA-Public Use
  Company Number: CH-LEADINGPHARMA-CH-2020LEALIT00050

PATIENT

DRUGS (5)
  1. PAROXETINE. [Suspect]
     Active Substance: PAROXETINE
     Indication: FOETAL EXPOSURE DURING PREGNANCY
     Route: 064
  2. SERTRALINE [Suspect]
     Active Substance: SERTRALINE HYDROCHLORIDE
     Indication: FOETAL EXPOSURE DURING PREGNANCY
     Route: 064
  3. LORAZEPAM TABLETS USP [Suspect]
     Active Substance: LORAZEPAM
     Indication: FOETAL EXPOSURE DURING PREGNANCY
     Route: 064
  4. PRAVASTATIN. [Suspect]
     Active Substance: PRAVASTATIN
     Indication: FOETAL EXPOSURE DURING PREGNANCY
     Route: 064
  5. ALPRAZOLAM. [Suspect]
     Active Substance: ALPRAZOLAM
     Indication: FOETAL EXPOSURE DURING PREGNANCY
     Route: 064

REACTIONS (1)
  - Haemangioma [Unknown]
